FAERS Safety Report 7321748-5 (Version None)
Quarter: 2011Q1

REPORT INFORMATION
  Report Type: 
  Country: None (occurrence: None)
  Receive Date: 20110228
  Receipt Date: 20100813
  Transmission Date: 20110831
  Serious: Yes (Hospitalization)
  Sender: FDA-Public Use
  Company Number: A0877064A

PATIENT
  Age: 82 Year
  Sex: Male
  Weight: 108.1 kg

DRUGS (2)
  1. MELPHALAN HYDROCHLORIDE [Suspect]
     Indication: MULTIPLE MYELOMA
     Dosage: 9MGM2 SEE DOSAGE TEXT
     Route: 048
     Dates: start: 20100317, end: 20100501
  2. PAIN MEDICATION [Suspect]
     Route: 065

REACTIONS (2)
  - NAUSEA [None]
  - VOMITING [None]
